FAERS Safety Report 7472483-4 (Version None)
Quarter: 2011Q2

REPORT INFORMATION
  Report Type: 
  Country: None (occurrence: None)
  Receive Date: 20110511
  Receipt Date: 20110329
  Transmission Date: 20111010
  Serious: Yes (Other)
  Sender: FDA-Public Use
  Company Number: US-BAYER-201037142NA

PATIENT
  Age: 32 Year
  Sex: Female
  Weight: 104.31 kg

DRUGS (1)
  1. YASMIN [Suspect]
     Indication: PREMENSTRUAL SYNDROME
     Dosage: UNK UNK, UNK
     Route: 048
     Dates: start: 20070401, end: 20070509

REACTIONS (5)
  - PAIN IN EXTREMITY [None]
  - ASTHENIA [None]
  - JOINT SWELLING [None]
  - DEEP VEIN THROMBOSIS [None]
  - CARDIOVASCULAR DISORDER [None]
